FAERS Safety Report 8500647-7 (Version None)
Quarter: 2012Q3

REPORT INFORMATION
  Report Type: 
  Country: None (occurrence: None)
  Receive Date: 20120710
  Receipt Date: 20120705
  Transmission Date: 20120928
  Serious: Yes (Death)
  Sender: FDA-Public Use
  Company Number: GB-ROCHE-1084359

PATIENT
  Sex: Female

DRUGS (1)
  1. MABTHERA [Suspect]
     Indication: PRODUCT USED FOR UNKNOWN INDICATION
     Dates: start: 20050706

REACTIONS (2)
  - RHEUMATOID ARTHRITIS [None]
  - INTERSTITIAL LUNG DISEASE [None]
